FAERS Safety Report 9132381 (Version 1)
Quarter: 2013Q1

REPORT INFORMATION
  Report Type: Spontaneous
  Country: US (occurrence: US)
  Receive Date: 20130301
  Receipt Date: 20130301
  Transmission Date: 20140127
  Serious: Yes (Hospitalization)
  Sender: FDA-Public Use
  Company Number: US-GLAXOSMITHKLINE-A0700843A

PATIENT
  Age: 65 Year
  Sex: Male
  Weight: 77.3 kg

DRUGS (20)
  1. AVANDIA [Suspect]
     Indication: TYPE 2 DIABETES MELLITUS
     Dosage: 8MG PER DAY
     Route: 048
     Dates: end: 200703
  2. HUMALOG [Concomitant]
  3. LANTUS [Concomitant]
  4. HUMULIN [Concomitant]
  5. ALTACE [Concomitant]
  6. LOPRESSOR [Concomitant]
  7. PAXIL [Concomitant]
  8. SEROQUEL [Concomitant]
  9. AMBIEN [Concomitant]
  10. SIMVASTATIN [Concomitant]
  11. RAMIPRIL [Concomitant]
  12. GLARGINE [Concomitant]
  13. ASPIRIN [Concomitant]
  14. ZOLPIDEM [Concomitant]
  15. TIOTROPIUM [Concomitant]
  16. NITROGLYCERIN [Concomitant]
  17. AMIODARONE [Concomitant]
  18. FUROSEMIDE [Concomitant]
  19. DIGOXIN [Concomitant]
  20. SEROQUEL [Concomitant]

REACTIONS (10)
  - Acute coronary syndrome [Not Recovered/Not Resolved]
  - Carotid artery stenosis [Unknown]
  - Atrial fibrillation [Unknown]
  - Pleural effusion [Unknown]
  - Myocardial infarction [Unknown]
  - Coronary artery disease [Unknown]
  - Supraventricular tachycardia [Unknown]
  - Insomnia [Unknown]
  - Depression [Unknown]
  - Asthenia [Unknown]
